FAERS Safety Report 22374677 (Version 1)
Quarter: 2023Q2

REPORT INFORMATION
  Report Type: Spontaneous
  Country: None (occurrence: CA)
  Receive Date: 20230526
  Receipt Date: 20230526
  Transmission Date: 20230721
  Serious: Yes (Hospitalization, Other)
  Sender: FDA-Public Use
  Company Number: CA-Harrow Eye-2142068

PATIENT
  Sex: Female

DRUGS (14)
  1. MAXIDEX [Suspect]
     Active Substance: DEXAMETHASONE
  2. GLYCOPYRROLATE [Suspect]
     Active Substance: GLYCOPYRROLATE
  3. ASPIRIN [Suspect]
     Active Substance: ASPIRIN
  4. LEVOFLOXACIN [Suspect]
     Active Substance: LEVOFLOXACIN
  5. LEVOFLOXACIN HEMIHYDRATE [Suspect]
     Active Substance: LEVOFLOXACIN
  6. ALVESCO [Suspect]
     Active Substance: CICLESONIDE
  7. BREO ELLIPTA [Suspect]
     Active Substance: FLUTICASONE FUROATE\VILANTEROL TRIFENATATE
  8. NASONEX [Suspect]
     Active Substance: MOMETASONE FUROATE
  9. PREDNISONE [Suspect]
     Active Substance: PREDNISONE
  10. PULMICORT FLEXHALER [Suspect]
     Active Substance: BUDESONIDE
  11. ALBUTEROL [Suspect]
     Active Substance: ALBUTEROL
  12. ALBUTEROL SULFATE [Suspect]
     Active Substance: ALBUTEROL SULFATE
  13. SINGULAIR [Suspect]
     Active Substance: MONTELUKAST SODIUM
  14. MOMETASONE FUROATE [Suspect]
     Active Substance: MOMETASONE FUROATE

REACTIONS (17)
  - Dyspnoea [Recovered/Resolved]
  - Ecchymosis [Recovered/Resolved]
  - Full blood count abnormal [Recovered/Resolved]
  - Lung disorder [Recovered/Resolved]
  - Nasal polyps [Recovered/Resolved]
  - Neuropathy peripheral [Recovered/Resolved]
  - Ocular hyperaemia [Recovered/Resolved]
  - Pain in extremity [Recovered/Resolved]
  - Paraesthesia [Recovered/Resolved]
  - Sleep disorder due to a general medical condition [Recovered/Resolved]
  - Asthma [Recovered/Resolved]
  - Wheezing [Recovered/Resolved]
  - Bronchial wall thickening [Recovered/Resolved]
  - Bronchopulmonary aspergillosis [Recovered/Resolved]
  - Chest discomfort [Recovered/Resolved]
  - Drug hypersensitivity [Recovered/Resolved]
  - Therapeutic product effect incomplete [Recovered/Resolved]
